FAERS Safety Report 24264047 (Version 3)
Quarter: 2024Q3

REPORT INFORMATION
  Report Type: Report from Study
  Country: CL (occurrence: CL)
  Receive Date: 20240829
  Receipt Date: 20240910
  Transmission Date: 20241016
  Serious: Yes (Other)
  Sender: JOHNSON AND JOHNSON
  Company Number: CL-JNJFOC-20240870647

PATIENT
  Age: 63 Year
  Sex: Female

DRUGS (1)
  1. SIMPONI [Suspect]
     Active Substance: GOLIMUMAB
     Indication: Rheumatoid arthritis
     Dosage: LAST RECORDED DATE OF ADHERENCE WAS ON 21-JUL-2024?50.00 MG / 0.50 ML
     Route: 058
     Dates: start: 20230613

REACTIONS (2)
  - Pneumonia [Unknown]
  - Product label issue [Unknown]
